FAERS Safety Report 10729313 (Version 1)
Quarter: 2015Q1

REPORT INFORMATION
  Report Type: Spontaneous
  Country: ES (occurrence: ES)
  Receive Date: 20150122
  Receipt Date: 20150122
  Transmission Date: 20150721
  Serious: Yes (Other)
  Sender: FDA-Public Use
  Company Number: ES-MYLANLABS-2015M1000885

PATIENT

DRUGS (1)
  1. LANSOPRAZOL MYLAN 30 MG C?PSULAS DURAS GASTRORRESISTENTES EFG [Suspect]
     Active Substance: LANSOPRAZOLE
     Indication: HIATUS HERNIA
     Dosage: 30 MG, QD
     Route: 048
     Dates: start: 20141218, end: 20150108

REACTIONS (3)
  - Pruritus [Unknown]
  - Hypersensitivity [Recovering/Resolving]
  - Eczema [Recovering/Resolving]

NARRATIVE: CASE EVENT DATE: 20141222
